FAERS Safety Report 7522320 (Version 5)
Quarter: 2013Q1

REPORT INFORMATION
  Report Type: Report from Study
  Country: CA (occurrence: CA)
  Receive Date: 20100803
  Receipt Date: 20130311
  Transmission Date: 20140127
  Serious: Yes (Death)
  Sender: FDA-Public Use
  Company Number: CA-CELGENEUS-028-C5013-10072304

PATIENT
  Age: 70 Year
  Sex: Male
  Weight: 87.3 kg

DRUGS (25)
  1. CC-5013 [Suspect]
     Indication: CHRONIC LYMPHOCYTIC LEUKAEMIA
     Dosage: 5 MILLIGRAM
     Route: 048
     Dates: start: 20100720, end: 20100723
  2. CALCIUM AND VIT D [Concomitant]
     Indication: SUPPLEMENTATION THERAPY
     Dosage: 400 IU (INTERNATIONAL UNIT)
     Route: 048
     Dates: start: 2000, end: 20100720
  3. OMEGA 3 EPA DHA [Concomitant]
     Indication: SUPPLEMENTATION THERAPY
     Dosage: 400-200MG
     Route: 048
     Dates: start: 2000, end: 20100720
  4. MULTIVITAMIN [Concomitant]
     Indication: SUPPLEMENTATION THERAPY
     Dosage: 1 TABLET
     Route: 048
     Dates: end: 20100720
  5. VITAMIN D [Concomitant]
     Indication: SUPPLEMENTATION THERAPY
     Dosage: 1000 IU (INTERNATIONAL UNIT)
     Route: 048
     Dates: start: 2008, end: 20100720
  6. MAGNESIUM [Concomitant]
     Indication: SUPPLEMENTATION THERAPY
     Dosage: 252 MILLIGRAM
     Route: 048
     Dates: start: 2009, end: 20100720
  7. LASIX [Concomitant]
     Indication: OEDEMA PERIPHERAL
     Dosage: 40 MILLIGRAM
     Route: 048
     Dates: start: 20100707, end: 20100713
  8. COLACE [Concomitant]
     Indication: CONSTIPATION
     Dosage: 100 MILLIGRAM
     Route: 048
     Dates: start: 20100706
  9. SIMVASTATIN [Concomitant]
     Indication: DYSLIPIDAEMIA
     Dosage: 20 MILLIGRAM
     Route: 048
     Dates: start: 200908
  10. SEPTRA [Concomitant]
     Indication: PROPHYLAXIS
     Dosage: 800/160 MILLIGRAM
     Route: 048
  11. PLAVIX [Concomitant]
     Indication: PROPHYLAXIS
     Dosage: 75 MILLIGRAM
     Route: 048
     Dates: start: 200908, end: 20100720
  12. PANTOLOC [Concomitant]
     Indication: GASTROOESOPHAGEAL REFLUX DISEASE
     Dosage: 40 MILLIGRAM
     Route: 048
     Dates: start: 200908
  13. METOPROLOL [Concomitant]
     Indication: PROPHYLAXIS
     Dosage: 50 MILLIGRAM
     Route: 048
     Dates: start: 200908
  14. AMLODIPINE [Concomitant]
     Indication: PROPHYLAXIS
     Dosage: 5 MILLIGRAM
     Route: 048
     Dates: start: 200908
  15. IMOVANE [Concomitant]
     Indication: INSOMNIA
     Dosage: 7.5 MILLIGRAM
     Route: 048
     Dates: start: 200908
  16. PREDNISONE [Concomitant]
     Indication: LYMPHADENOPATHY
     Dosage: 100 MILLIGRAM
     Route: 048
     Dates: start: 20100713, end: 20100719
  17. ALLOPURINOL [Concomitant]
     Indication: ANTIVIRAL PROPHYLAXIS
     Dosage: 300 MILLIGRAM
     Route: 048
     Dates: start: 20100713, end: 20100719
  18. ALLOPURINOL [Concomitant]
     Dosage: 600 MILLIGRAM
     Route: 048
     Dates: start: 20100720, end: 20100720
  19. ALLOPURINOL [Concomitant]
     Dosage: 300 MILLIGRAM
     Route: 048
     Dates: start: 20100721
  20. EC ASA [Concomitant]
     Indication: THROMBOSIS PROPHYLAXIS
     Dosage: 81 MILLIGRAM
     Route: 048
     Dates: start: 20100720
  21. AMPHOJEL [Concomitant]
     Indication: PROPHYLAXIS
     Dosage: 60 MILLILITER
     Route: 048
     Dates: start: 20100720, end: 20100723
  22. LEVAQUIN [Concomitant]
     Indication: SINUSITIS
     Dosage: 500 MILLIGRAM
     Route: 048
     Dates: start: 20100722
  23. RASBURICASE [Concomitant]
     Indication: PROPHYLAXIS
     Dosage: 12 MILLIGRAM
     Route: 041
     Dates: start: 20100720, end: 20100720
  24. NORMAL SALINE [Concomitant]
     Indication: PROPHYLAXIS
     Route: 041
     Dates: start: 20100720, end: 20100723
  25. NORMAL SALINE [Concomitant]
     Indication: TUMOUR FLARE

REACTIONS (1)
  - Death [Fatal]
